FAERS Safety Report 7677011-6 (Version None)
Quarter: 2011Q3

REPORT INFORMATION
  Report Type: 
  Country: None (occurrence: None)
  Receive Date: 20110811
  Receipt Date: 20110805
  Transmission Date: 20111222
  Serious: No
  Sender: FDA-Public Use
  Company Number: BR-ROCHE-730304

PATIENT
  Age: 27 Year
  Sex: Female

DRUGS (2)
  1. ISOTRETINOIN [Suspect]
     Dosage: STRENGTH^:10 MG AND 20 MG, DOSE:10 AND 20 MG PER DAY
     Route: 048
  2. ISOTRETINOIN [Suspect]
     Route: 048

REACTIONS (3)
  - TREATMENT NONCOMPLIANCE [None]
  - NO ADVERSE EVENT [None]
  - PREGNANCY [None]
